FAERS Safety Report 6857820-3 (Version None)
Quarter: 2010Q3

REPORT INFORMATION
  Report Type: 
  Country: None (occurrence: None)
  Receive Date: 20100719
  Receipt Date: 20080201
  Transmission Date: 20110219
  Serious: No
  Sender: FDA-Public Use
  Company Number: US-PFIZER INC-2008009499

PATIENT
  Sex: Female
  Weight: 71.2 kg

DRUGS (11)
  1. CHANTIX [Suspect]
     Indication: SMOKING CESSATION THERAPY
     Dates: start: 20080125
  2. BUSPIRONE [Concomitant]
  3. ZANTAC [Concomitant]
  4. METFORMIN [Concomitant]
     Indication: DIABETES MELLITUS
  5. METOPROLOL [Concomitant]
  6. LOSARTAN POSTASSIUM [Concomitant]
     Indication: CARDIAC DISORDER
  7. PROGESTERONE W/ESTROGENS/ [Concomitant]
  8. GABAPENTIN [Concomitant]
  9. DARVOCET [Concomitant]
  10. CLARITIN [Concomitant]
     Indication: HYPERSENSITIVITY
  11. OTHER DERMATOLOGICAL PREPARATIONS [Concomitant]

REACTIONS (9)
  - ABDOMINAL DISCOMFORT [None]
  - ABDOMINAL PAIN UPPER [None]
  - ABNORMAL DREAMS [None]
  - DIARRHOEA [None]
  - FLATULENCE [None]
  - INFLUENZA [None]
  - NAUSEA [None]
  - PAIN [None]
  - PYREXIA [None]
